FAERS Safety Report 10202695 (Version 1)
Quarter: 2014Q2

REPORT INFORMATION
  Report Type: Spontaneous
  Country: TR (occurrence: TR)
  Receive Date: 20140528
  Receipt Date: 20140528
  Transmission Date: 20141212
  Serious: Yes (Other)
  Sender: FDA-Public Use
  Company Number: TR-ACTAVIS-2014-10657

PATIENT
  Age: 3 Year
  Sex: Male

DRUGS (2)
  1. PHENYTOIN (AMALLC) [Suspect]
     Indication: CONVULSION
     Dosage: 5 MG/KG, DAILY
     Route: 042
  2. PHENYTOIN (AMALLC) [Suspect]
     Dosage: 20 MG/KG, SINGLE
     Route: 042

REACTIONS (1)
  - Dysphemia [Recovered/Resolved]
